FAERS Safety Report 11438748 (Version 1)
Quarter: 2015Q3

REPORT INFORMATION
  Report Type: Spontaneous
  Country: US (occurrence: None)
  Receive Date: 20150828
  Receipt Date: 20150828
  Transmission Date: 20151125
  Serious: Yes (Other)
  Sender: FDA-Public Use
  Company Number: ADE15-049

PATIENT
  Age: 78 Year
  Sex: Male
  Weight: 90 kg

DRUGS (5)
  1. PACKED RED BLOOD CELLS [Concomitant]
     Active Substance: HUMAN RED BLOOD CELL
  2. HEPARIN SODIUM. [Suspect]
     Active Substance: HEPARIN SODIUM
     Indication: AORTIC VALVE REPLACEMENT
     Dates: start: 20150820, end: 20150820
  3. MANNITOL. [Concomitant]
     Active Substance: MANNITOL
  4. HEPARIN SODIUM. [Suspect]
     Active Substance: HEPARIN SODIUM
     Indication: CORONARY ARTERY BYPASS
     Dates: start: 20150820, end: 20150820
  5. LIDOCAINE. [Concomitant]
     Active Substance: LIDOCAINE

REACTIONS (1)
  - Coagulation time shortened [None]

NARRATIVE: CASE EVENT DATE: 20150820
